FAERS Safety Report 7250225-5 (Version None)
Quarter: 2011Q1

REPORT INFORMATION
  Report Type: 
  Country: None (occurrence: None)
  Receive Date: 20110128
  Receipt Date: 20110113
  Transmission Date: 20110831
  Serious: Yes (Hospitalization)
  Sender: FDA-Public Use
  Company Number: FR-BAYER-2011-005341

PATIENT
  Sex: Male

DRUGS (9)
  1. ASPEGIC 325 [Suspect]
     Indication: PRODUCT USED FOR UNKNOWN INDICATION
     Dosage: 1000 MG, QD
     Route: 048
     Dates: end: 20060607
  2. INSULATARD [Concomitant]
  3. DIAMICRON [Suspect]
     Indication: PRODUCT USED FOR UNKNOWN INDICATION
     Dosage: UNK
     Route: 048
     Dates: end: 20060607
  4. CIFLOX [Suspect]
     Indication: PRODUCT USED FOR UNKNOWN INDICATION
     Dosage: 500 MG, BID
     Route: 048
     Dates: start: 20100322, end: 20100330
  5. GLUCOPHAGE [Suspect]
     Indication: PRODUCT USED FOR UNKNOWN INDICATION
     Dosage: 850 MG, TID
     Route: 048
     Dates: end: 20060607
  6. CARDENSIEL [Suspect]
     Indication: PRODUCT USED FOR UNKNOWN INDICATION
     Dosage: UNK
     Route: 048
     Dates: end: 20060607
  7. CIFLOX [Suspect]
     Dosage: 500 MG, BID
     Dates: start: 20100611, end: 20100615
  8. INIPOMP [Suspect]
     Indication: PRODUCT USED FOR UNKNOWN INDICATION
     Dosage: 40 MG, QD
     Route: 048
     Dates: end: 20060607
  9. PERINDOPRIL [Concomitant]

REACTIONS (6)
  - ASTHENIA [None]
  - JAUNDICE [None]
  - CHOLANGITIS [None]
  - FAECES DISCOLOURED [None]
  - PRURITUS [None]
  - WEIGHT DECREASED [None]
